FAERS Safety Report 21086739 (Version 1)
Quarter: 2022Q3

REPORT INFORMATION
  Report Type: Spontaneous
  Country: FR (occurrence: FR)
  Receive Date: 20220715
  Receipt Date: 20220715
  Transmission Date: 20221027
  Serious: Yes (Other)
  Sender: FDA-Public Use
  Company Number: FR-NOVARTISPH-NVSC2022FR159004

PATIENT
  Age: 48 Year
  Sex: Female

DRUGS (1)
  1. DABRAFENIB [Suspect]
     Active Substance: DABRAFENIB
     Indication: Erdheim-Chester disease
     Dosage: 75 MG, BID (2 PER DAY)
     Route: 065

REACTIONS (3)
  - Iridocyclitis [Unknown]
  - Uveitis [Unknown]
  - Product use in unapproved indication [Unknown]
